FAERS Safety Report 7137706-X (Version None)
Quarter: 2010Q4

REPORT INFORMATION
  Report Type: 
  Country: None (occurrence: None)
  Receive Date: 20101206
  Receipt Date: 20101124
  Transmission Date: 20110411
  Serious: Yes (Life-Threatening, Hospitalization, Other)
  Sender: FDA-Public Use
  Company Number: FR-BAYER-200934710GPV

PATIENT
  Sex: Female
  Weight: 56 kg

DRUGS (2)
  1. MIRENA [Suspect]
     Dosage: 20 A?G (DAILY DOSE), CONT, INTRA-UTERINE
     Route: 015
     Dates: start: 20090914, end: 20090915
  2. FERROGRAD [Concomitant]
     Dosage: 500 MG (DAILY DOSE), QD, ORAL
     Route: 048
     Dates: start: 20090914

REACTIONS (19)
  - ACUTE RESPIRATORY DISTRESS SYNDROME [None]
  - ACUTE RESPIRATORY FAILURE [None]
  - ALANINE AMINOTRANSFERASE INCREASED [None]
  - ASPARTATE AMINOTRANSFERASE INCREASED [None]
  - BLOOD ALKALINE PHOSPHATASE INCREASED [None]
  - CHOLECYSTITIS [None]
  - CHOLESTASIS [None]
  - DEVICE RELATED INFECTION [None]
  - DISSEMINATED INTRAVASCULAR COAGULATION [None]
  - ENCEPHALOPATHY [None]
  - ENDOMETRITIS [None]
  - ESCHERICHIA INFECTION [None]
  - GALLBLADDER DISORDER [None]
  - GAMMA-GLUTAMYLTRANSFERASE INCREASED [None]
  - OVARIAN CYST [None]
  - PERITONITIS [None]
  - PLEURAL EFFUSION [None]
  - SEPTIC SHOCK [None]
  - STREPTOCOCCAL INFECTION [None]
